FAERS Safety Report 24195166 (Version 1)
Quarter: 2024Q3

REPORT INFORMATION
  Report Type: Spontaneous
  Country: BG (occurrence: BG)
  Receive Date: 20240809
  Receipt Date: 20240809
  Transmission Date: 20241017
  Serious: Yes (Life-Threatening, Hospitalization, Other)
  Sender: MYLAN
  Company Number: BG-EGIS-HUN-2024-0922

PATIENT
  Age: 46 Year
  Sex: Female

DRUGS (3)
  1. OLANZAPINE [Suspect]
     Active Substance: OLANZAPINE
     Indication: Product used for unknown indication
     Dosage: INGESTION OF POTENTIALLY LETHAL AMOUNT OF ANTIPSYCHOTIC, NEUROLEPTIC MEDICATION WITH SUICIDAL INTENT
     Route: 065
     Dates: start: 20240507, end: 20240507
  2. CLOZAPINE [Suspect]
     Active Substance: CLOZAPINE
     Indication: Product used for unknown indication
     Dosage: INGESTION OF POTENTIALLY LETHAL AMOUNT OF ANTIPSYCHOTIC, NEUROLEPTIC MEDICATION WITH SUICIDAL INTENT
     Route: 065
  3. PREGABALIN [Suspect]
     Active Substance: PREGABALIN
     Indication: Product used for unknown indication
     Dosage: INGESTION OF POTENTIALLY LETHAL AMOUNT OF ANTIPSYCHOTIC, NEUROLEPTIC MEDICATION WITH SUICIDAL INTENT
     Route: 065

REACTIONS (13)
  - Suicide attempt [Recovered/Resolved]
  - Poisoning [Recovered/Resolved]
  - Hypotension [Recovered/Resolved]
  - Loss of consciousness [Recovered/Resolved]
  - Pneumonia aspiration [Recovered/Resolved]
  - Electrocardiogram QT prolonged [Recovered/Resolved]
  - Tachyarrhythmia [Recovered/Resolved]
  - Coma [Recovered/Resolved]
  - Wheezing [Recovered/Resolved]
  - Mydriasis [Recovered/Resolved]
  - Metabolic acidosis [Recovered/Resolved]
  - Oliguria [Recovered/Resolved]
  - Intentional overdose [Recovered/Resolved]

NARRATIVE: CASE EVENT DATE: 20240507
